FAERS Safety Report 11096863 (Version 1)
Quarter: 2015Q2

REPORT INFORMATION
  Report Type: Spontaneous
  Country: US (occurrence: None)
  Receive Date: 20150506
  Receipt Date: 20150506
  Transmission Date: 20150821
  Serious: Yes (Hospitalization)
  Sender: FDA-Public Use
  Company Number: None

PATIENT
  Age: 57 Year
  Sex: Female
  Weight: 59.88 kg

DRUGS (2)
  1. LEVOTHYROXINE (GENERIC) 75 MCG [Suspect]
     Active Substance: LEVOTHYROXINE
     Indication: AUTOIMMUNE THYROIDITIS
     Route: 048
     Dates: start: 201409, end: 201501
  2. TIROSINT [Suspect]
     Active Substance: LEVOTHYROXINE SODIUM
     Indication: AUTOIMMUNE THYROIDITIS
     Route: 048
     Dates: start: 201407, end: 201409

REACTIONS (1)
  - Palpitations [None]

NARRATIVE: CASE EVENT DATE: 201409
